FAERS Safety Report 5424986-1 (Version None)
Quarter: 2007Q3

REPORT INFORMATION
  Report Type: 
  Country: None (occurrence: None)
  Receive Date: 20070824
  Receipt Date: 20070821
  Transmission Date: 20080115
  Serious: Yes (Hospitalization)
  Sender: FDA-Public Use
  Company Number: B0484347A

PATIENT
  Age: 90 Year
  Sex: Male

DRUGS (7)
  1. AMOXICILLIN TRIHYDRATE [Suspect]
     Dosage: 1500MG PER DAY
     Route: 048
     Dates: start: 20070809, end: 20070816
  2. CLARITHROMYCIN [Suspect]
     Dosage: 400MG PER DAY
     Route: 048
     Dates: start: 20070809, end: 20070816
  3. LANSOPRAZOLE [Concomitant]
     Dosage: 60MG PER DAY
     Route: 048
     Dates: start: 20070809, end: 20070816
  4. BIOFERMIN R [Concomitant]
     Dosage: 12MG PER DAY
     Route: 048
     Dates: start: 20070809, end: 20070816
  5. RENIVACE [Concomitant]
     Dosage: 5MG PER DAY
     Route: 048
  6. CALSLOT [Concomitant]
     Dosage: 20MG PER DAY
     Route: 048
  7. LASIX [Concomitant]
     Dosage: 20MG PER DAY
     Route: 048

REACTIONS (1)
  - RENAL DISORDER [None]
